FAERS Safety Report 4341092-8 (Version None)
Quarter: 2004Q2

REPORT INFORMATION
  Report Type: 
  Country: None (occurrence: None)
  Receive Date: 20040419
  Receipt Date: 20040107
  Transmission Date: 20050107
  Serious: Yes (Death, Other)
  Sender: FDA-Public Use
  Company Number: PHBS2004FI00515

PATIENT
  Age: 55 Year
  Sex: Female

DRUGS (2)
  1. LEPONEX [Suspect]
     Route: 065
  2. VALPROATE SODIUM [Concomitant]
     Indication: ABNORMAL BEHAVIOUR
     Route: 065
     Dates: start: 20030501

REACTIONS (2)
  - DRUG LEVEL INCREASED [None]
  - DRUG TOXICITY [None]
